FAERS Safety Report 8092583-8 (Version None)
Quarter: 2012Q1

REPORT INFORMATION
  Report Type: 
  Country: None (occurrence: None)
  Receive Date: 20120128
  Receipt Date: 20110722
  Transmission Date: 20120608
  Serious: No
  Sender: FDA-Public Use
  Company Number: US-ABBOTT-11P-163-0841383-00

PATIENT
  Age: 33 Year
  Sex: Female

DRUGS (7)
  1. CIPROFLOXACIN [Concomitant]
     Indication: ANAL FISTULA INFECTION
  2. HUMIRA [Suspect]
     Indication: CROHN'S DISEASE
     Dosage: DAY ONE
     Dates: start: 20110720
  3. ENTOCORT EC [Concomitant]
     Indication: CROHN'S DISEASE
     Dosage: DAILY
  4. CIPROFLOXACIN [Concomitant]
     Indication: ANAL FISTULA
     Dosage: FOR 2 WEEKS
  5. FLINTSTONE VIT [Concomitant]
     Indication: VITAMIN SUPPLEMENTATION
     Dosage: DAILY
  6. FLAGYL [Concomitant]
     Indication: ANAL FISTULA
     Dosage: FOR 2 WEEKS
  7. FLAGYL [Concomitant]
     Indication: ANAL FISTULA INFECTION

REACTIONS (1)
  - INJECTION SITE PAIN [None]
